FAERS Safety Report 7703736-X (Version None)
Quarter: 2011Q3

REPORT INFORMATION
  Report Type: 
  Country: None (occurrence: None)
  Receive Date: 20110823
  Receipt Date: 20110811
  Transmission Date: 20111222
  Serious: Yes (Hospitalization, Other)
  Sender: FDA-Public Use
  Company Number: JP-JNJFOC-20091203627

PATIENT
  Sex: Female
  Weight: 49 kg

DRUGS (2)
  1. DOXORUBICIN HCL [Suspect]
     Indication: OVARIAN CANCER RECURRENT
     Dosage: CYCLE 2
     Route: 042
     Dates: start: 20090623, end: 20090623
  2. DOXORUBICIN HCL [Suspect]
     Dosage: CYCLE 1
     Route: 042
     Dates: start: 20090519, end: 20090519

REACTIONS (3)
  - STOMATITIS [None]
  - CARBOHYDRATE ANTIGEN 125 INCREASED [None]
  - NEUTROPENIA [None]
